FAERS Safety Report 18382324 (Version 1)
Quarter: 2020Q4

REPORT INFORMATION
  Report Type: Spontaneous
  Country: US (occurrence: US)
  Receive Date: 20201013
  Receipt Date: 20201013
  Transmission Date: 20210114
  Serious: Yes (Hospitalization, Other)
  Sender: FDA-Public Use
  Company Number: None

PATIENT
  Age: 32 Year
  Sex: Female
  Weight: 72.58 kg

DRUGS (2)
  1. MULTIVITAMIN [Concomitant]
     Active Substance: VITAMINS
  2. PARAGARD T 380A [Suspect]
     Active Substance: COPPER
     Dates: start: 20141001, end: 20201003

REACTIONS (2)
  - Device breakage [None]
  - Complication of device removal [None]

NARRATIVE: CASE EVENT DATE: 20201003
